FAERS Safety Report 4438971-X (Version None)
Quarter: 2004Q3

REPORT INFORMATION
  Report Type: 
  Country: None (occurrence: None)
  Receive Date: 20040901
  Receipt Date: 20040730
  Transmission Date: 20050211
  Serious: Yes (Death)
  Sender: FDA-Public Use
  Company Number: JP-ROCHE-376269

PATIENT
  Age: 70 Year
  Sex: Male
  Weight: 72 kg

DRUGS (9)
  1. PANALDINE [Suspect]
     Dosage: FURTHER INDICATIONS FOR USE WERE  ANGINA PECTORIS AND POST STENTING.
     Route: 048
     Dates: start: 20040114, end: 20040217
  2. PANALDINE [Suspect]
     Route: 048
     Dates: start: 20040621, end: 20040718
  3. ASPIRIN [Concomitant]
     Dosage: OTHER INDICATIONS FOR USE WERE ANGINA PECTORIS AND POST STENTING.
     Route: 048
     Dates: start: 20040119
  4. RENIVACE [Concomitant]
     Dosage: OTHER INDICATION FOR USE WAS CARDIAC INSUFFICIENCY.
     Route: 048
     Dates: start: 20040119
  5. FRANDOL [Concomitant]
     Indication: ANGINA PECTORIS
     Dosage: DRUG NAME STATED AS FRANDOL S.
     Route: 046
     Dates: start: 20040119
  6. NORVASC [Concomitant]
     Indication: ANGINA PECTORIS
     Route: 048
     Dates: start: 20040119
  7. MEXITIL [Concomitant]
     Indication: VENTRICULAR TACHYCARDIA
     Route: 048
     Dates: start: 20040119
  8. GASTER [Concomitant]
     Indication: GASTRIC ULCER
     Route: 048
     Dates: start: 20040119
  9. CHINESE MEDICINE [Concomitant]

REACTIONS (11)
  - BODY TEMPERATURE INCREASED [None]
  - CHEST PAIN [None]
  - CYANOSIS [None]
  - HAEMOPTYSIS [None]
  - HEART RATE DECREASED [None]
  - HEART RATE INCREASED [None]
  - LEUKOPENIA [None]
  - MALAISE [None]
  - NAUSEA [None]
  - PNEUMONIA [None]
  - SEPTIC SHOCK [None]
